FAERS Safety Report 5530271-X (Version None)
Quarter: 2007Q4

REPORT INFORMATION
  Report Type: 
  Country: None (occurrence: None)
  Receive Date: 20071130
  Receipt Date: 20071128
  Transmission Date: 20080405
  Serious: Yes (Life-Threatening)
  Sender: FDA-Public Use
  Company Number: DE-BRISTOL-MYERS SQUIBB COMPANY-13999107

PATIENT
  Age: 54 Year
  Sex: Female
  Weight: 80 kg

DRUGS (9)
  1. TAXOL [Suspect]
     Indication: BREAST CANCER
     Route: 042
     Dates: start: 20070820, end: 20071018
  2. CYCLOPHOSPHAMIDE [Suspect]
     Indication: BREAST CANCER
     Route: 042
     Dates: start: 20071101, end: 20071115
  3. EPIRUBICIN [Suspect]
     Indication: BREAST CANCER
     Route: 042
     Dates: start: 20070605, end: 20070906
  4. IBANDRONATE [Suspect]
  5. EPOETIN BETA [Concomitant]
     Route: 058
     Dates: start: 20070809, end: 20071115
  6. PEGFILGRASTIM [Concomitant]
     Route: 058
     Dates: start: 20070809, end: 20071115
  7. FERRO SANOL [Concomitant]
     Route: 048
     Dates: start: 20070809, end: 20071127
  8. ESOMEPRAZOLE [Concomitant]
     Route: 048
     Dates: start: 20070809, end: 20071127
  9. METOCLOPRAMIDE [Concomitant]
     Route: 048
     Dates: start: 20070809, end: 20071127

REACTIONS (4)
  - GASTRITIS [None]
  - NAUSEA [None]
  - NO THERAPEUTIC RESPONSE [None]
  - VOMITING [None]
